FAERS Safety Report 12722380 (Version 2)
Quarter: 2016Q3

REPORT INFORMATION
  Report Type: Spontaneous
  Country: US (occurrence: US)
  Receive Date: 20160907
  Receipt Date: 20160929
  Transmission Date: 20161109
  Serious: Yes (Life-Threatening, Hospitalization, Disabling, Other)
  Sender: FDA-Public Use
  Company Number: US-DEPOMED, INC.-US-2016DEP011906

PATIENT

DRUGS (4)
  1. NUCYNTA [Suspect]
     Active Substance: TAPENTADOL HYDROCHLORIDE
     Indication: FIBROMYALGIA
  2. NUCYNTA [Suspect]
     Active Substance: TAPENTADOL HYDROCHLORIDE
     Indication: PAIN
  3. NUCYNTA [Suspect]
     Active Substance: TAPENTADOL HYDROCHLORIDE
     Indication: ARTHRITIS
     Dosage: 100 MG, EVERY 4 HOURS
     Route: 048
     Dates: start: 2013, end: 20160826
  4. ADDERALL [Suspect]
     Active Substance: AMPHETAMINE ASPARTATE\AMPHETAMINE SULFATE\DEXTROAMPHETAMINE SACCHARATE\DEXTROAMPHETAMINE SULFATE
     Indication: DEPRESSIVE SYMPTOM
     Dosage: 10 MG, UNK
     Route: 048
     Dates: start: 20150407, end: 20151209

REACTIONS (17)
  - Encephalopathy [Recovered/Resolved]
  - Delusion [Unknown]
  - Ascites [Recovered/Resolved]
  - Arthropathy [Not Recovered/Not Resolved]
  - Product use issue [Recovered/Resolved]
  - Oesophageal varices haemorrhage [Recovered/Resolved]
  - Pain [Not Recovered/Not Resolved]
  - Mental disorder [Not Recovered/Not Resolved]
  - Gastrooesophageal reflux disease [Recovered/Resolved]
  - Mental impairment [Recovered/Resolved]
  - Coma [Recovered/Resolved]
  - Swelling [Not Recovered/Not Resolved]
  - Oesophageal rupture [Recovered/Resolved]
  - Haematemesis [Recovered/Resolved]
  - Ammonia abnormal [Recovered/Resolved]
  - Liver disorder [Recovered/Resolved]
  - Blood pressure abnormal [Recovered/Resolved]

NARRATIVE: CASE EVENT DATE: 2013
